FAERS Safety Report 8302885-5 (Version None)
Quarter: 2012Q2

REPORT INFORMATION
  Report Type: 
  Country: None (occurrence: None)
  Receive Date: 20120420
  Receipt Date: 20120417
  Transmission Date: 20120825
  Serious: Yes (Other)
  Sender: FDA-Public Use
  Company Number: DE-PFIZER INC-2012083754

PATIENT
  Age: 70 Year
  Sex: Male
  Weight: 68 kg

DRUGS (4)
  1. TAMSULOSIN [Concomitant]
     Indication: BENIGN PROSTATIC HYPERPLASIA
     Dosage: UNK, 1X/DAY
     Route: 048
  2. LYRICA [Suspect]
     Indication: BONE PAIN
     Dosage: 50 (NO UNIT PROVIDED), 1X/DAY
     Dates: start: 20080101, end: 20111001
  3. FENOFIBRATE [Concomitant]
     Indication: BLOOD CHOLESTEROL INCREASED
     Dosage: UNK, 1X/DAY
     Route: 048
  4. ENALAPRIL [Concomitant]
     Indication: HYPERTENSION
     Dosage: 5 (NO UNIT PROVIDED), 2 X 1/2
     Route: 048

REACTIONS (1)
  - DEMENTIA [None]
